FAERS Safety Report 7306051-1 (Version None)
Quarter: 2011Q1

REPORT INFORMATION
  Report Type: 
  Country: None (occurrence: None)
  Receive Date: 20110222
  Receipt Date: 20110216
  Transmission Date: 20110831
  Serious: Yes (Life-Threatening)
  Sender: FDA-Public Use
  Company Number: FR-PFIZER INC-2011033940

PATIENT
  Age: 84 Year
  Sex: Female

DRUGS (10)
  1. TRIFLUCAN [Suspect]
     Indication: FUNGAL INFECTION
     Dosage: 50 MG/ML, 1X/DAY
     Route: 048
     Dates: start: 20100806, end: 20100809
  2. COUMADIN [Suspect]
     Indication: ARRHYTHMIA
     Dosage: 2 MG, 1X/DAY
     Route: 048
     Dates: end: 20100811
  3. CEFTRIAXONE [Suspect]
     Indication: URINARY TRACT INFECTION
     Dosage: 1 G, 2X/DAY
     Route: 042
     Dates: start: 20100804
  4. ECONAZOLE [Concomitant]
     Indication: FUNGAL INFECTION
     Dosage: 1 DF, 1X/DAY
     Route: 061
     Dates: start: 20100806, end: 20100809
  5. EQUANIL [Concomitant]
     Dosage: 400 MG, 1X/DAY
     Route: 048
  6. LASIX [Concomitant]
     Dosage: 20 MG, 1X/DAY
     Route: 048
  7. APROVEL [Concomitant]
     Dosage: 150 MG, 1X/DAY
     Route: 048
  8. CEFIXIME [Concomitant]
     Indication: URINARY TRACT INFECTION
     Dosage: 200 MG, 2X/DAY
     Route: 048
     Dates: start: 20100728, end: 20100803
  9. CORDARONE [Concomitant]
     Dosage: 200 MG, 1X/DAY
     Route: 048
  10. DISCOTRINE [Concomitant]
     Dosage: 10 MG, 1X/DAY
     Route: 062

REACTIONS (17)
  - INTERNATIONAL NORMALISED RATIO INCREASED [None]
  - GASTROINTESTINAL MOTILITY DISORDER [None]
  - OVERDOSE [None]
  - INFLAMMATION [None]
  - CHEILITIS [None]
  - GENERAL PHYSICAL HEALTH DETERIORATION [None]
  - MULTI-ORGAN FAILURE [None]
  - CONDITION AGGRAVATED [None]
  - DYSPNOEA [None]
  - SKIN LESION [None]
  - RENAL FAILURE [None]
  - DIARRHOEA [None]
  - FUNGAL INFECTION [None]
  - EPIDERMOLYSIS [None]
  - ANAEMIA [None]
  - PSEUDOMONAS TEST POSITIVE [None]
  - CLOSTRIDIUM TEST POSITIVE [None]
